FAERS Safety Report 11765019 (Version 1)
Quarter: 2015Q4

REPORT INFORMATION
  Report Type: Spontaneous
  Country: US (occurrence: US)
  Receive Date: 20151120
  Receipt Date: 20151120
  Transmission Date: 20160304
  Serious: No
  Sender: FDA-Public Use
  Company Number: US-ELI_LILLY_AND_COMPANY-US201310002598

PATIENT
  Sex: Female

DRUGS (1)
  1. FORTEO [Suspect]
     Active Substance: TERIPARATIDE
     Indication: OSTEOPOROSIS
     Dosage: 20 UG, QD
     Route: 065
     Dates: start: 20130913

REACTIONS (6)
  - Nausea [Unknown]
  - Vomiting [Unknown]
  - Back pain [Recovering/Resolving]
  - Dysentery [Unknown]
  - Diarrhoea [Unknown]
  - Gastrointestinal disorder [Unknown]
